FAERS Safety Report 6664197-5 (Version None)
Quarter: 2010Q2

REPORT INFORMATION
  Report Type: 
  Country: None (occurrence: None)
  Receive Date: 20100401
  Receipt Date: 20100323
  Transmission Date: 20101027
  Serious: Yes (Other)
  Sender: FDA-Public Use
  Company Number: IL-PFIZER INC-2010037078

PATIENT
  Age: 72 Year
  Sex: Male

DRUGS (5)
  1. LIPITOR [Suspect]
     Indication: HYPERLIPIDAEMIA
     Dosage: 80 MG, 1X/DAY
  2. AMLODIPINE BESILATE [Concomitant]
     Dosage: 5 MG, UNK
  3. MICROPIRIN [Concomitant]
     Dosage: 100 MG, UNK
  4. BISOPROLOL [Concomitant]
     Dosage: 5 MG, UNK
  5. TRITACE [Concomitant]
     Dosage: 5 MG, UNK

REACTIONS (1)
  - THROMBOCYTOPENIA [None]
